FAERS Safety Report 15939525 (Version 2)
Quarter: 2019Q3

REPORT INFORMATION
  Report Type: Spontaneous
  Country: US (occurrence: US)
  Receive Date: 20190208
  Receipt Date: 20190802
  Transmission Date: 20191004
  Serious: Yes (Other)
  Sender: FDA-Public Use
  Company Number: US-ASTRAZENECA-2019SE10261

PATIENT
  Age: 79 Year
  Sex: Female
  Weight: 72.6 kg

DRUGS (17)
  1. NEXIUM [Suspect]
     Active Substance: ESOMEPRAZOLE MAGNESIUM
     Indication: BIOPSY COLON ABNORMAL
     Route: 048
  2. PANTOPRAZOLE [Suspect]
     Active Substance: PANTOPRAZOLE
     Indication: BIOPSY COLON ABNORMAL
     Dosage: GENERIC
     Route: 065
     Dates: start: 2014
  3. LOSARTAN. [Concomitant]
     Active Substance: LOSARTAN
     Indication: BLOOD PRESSURE MEASUREMENT
  4. COUMADIN [Concomitant]
     Active Substance: WARFARIN SODIUM
  5. ASPIRIN. [Concomitant]
     Active Substance: ASPIRIN
  6. TRAMADOL. [Concomitant]
     Active Substance: TRAMADOL
  7. CARVEDILOL. [Concomitant]
     Active Substance: CARVEDILOL
  8. NEXIUM [Suspect]
     Active Substance: ESOMEPRAZOLE MAGNESIUM
     Indication: ABDOMINAL DISCOMFORT
     Route: 048
  9. NEXIUM [Suspect]
     Active Substance: ESOMEPRAZOLE MAGNESIUM
     Indication: ABDOMINAL DISCOMFORT
     Route: 048
     Dates: start: 2009, end: 2014
  10. PANTOPRAZOLE [Suspect]
     Active Substance: PANTOPRAZOLE
     Indication: ABDOMINAL DISCOMFORT
     Dosage: GENERIC
     Route: 065
     Dates: start: 2014
  11. DOXYCYCLINE HYCLATE. [Concomitant]
     Active Substance: DOXYCYCLINE HYCLATE
  12. FUROSEMIDE. [Concomitant]
     Active Substance: FUROSEMIDE
  13. NEXIUM [Suspect]
     Active Substance: ESOMEPRAZOLE MAGNESIUM
     Indication: ABDOMINAL DISCOMFORT
     Route: 048
     Dates: start: 20170425
  14. LEVOTHYROXINE. [Concomitant]
     Active Substance: LEVOTHYROXINE
  15. NEXIUM [Suspect]
     Active Substance: ESOMEPRAZOLE MAGNESIUM
     Indication: BIOPSY COLON ABNORMAL
     Route: 048
     Dates: start: 20170425
  16. NEXIUM [Suspect]
     Active Substance: ESOMEPRAZOLE MAGNESIUM
     Indication: BIOPSY COLON ABNORMAL
     Route: 048
     Dates: start: 2009, end: 2014
  17. LIPITOR [Concomitant]
     Active Substance: ATORVASTATIN CALCIUM

REACTIONS (4)
  - Renal failure [Unknown]
  - Chronic kidney disease [Not Recovered/Not Resolved]
  - Rebound acid hypersecretion [Unknown]
  - Renal injury [Unknown]

NARRATIVE: CASE EVENT DATE: 2014
